FAERS Safety Report 6107872-3 (Version None)
Quarter: 2009Q1

REPORT INFORMATION
  Report Type: 
  Country: None (occurrence: None)
  Receive Date: 20090309
  Receipt Date: 20090226
  Transmission Date: 20090719
  Serious: Yes (Other)
  Sender: FDA-Public Use
  Company Number: PHHY2009BR07239

PATIENT
  Sex: Female

DRUGS (3)
  1. ELIDEL [Suspect]
     Indication: VITILIGO
     Dosage: ONCE DAILY
     Route: 061
  2. PURAN T4 [Concomitant]
     Indication: HYPOTHYROIDISM
     Dosage: 1 DF, QD
     Route: 048
  3. REQUINOL [Concomitant]
     Dosage: UNK

REACTIONS (3)
  - ABORTION [None]
  - ANTIPHOSPHOLIPID SYNDROME [None]
  - DRUG EXPOSURE DURING PREGNANCY [None]
